FAERS Safety Report 4382512-2 (Version None)
Quarter: 2004Q2

REPORT INFORMATION
  Report Type: 
  Country: None (occurrence: None)
  Receive Date: 20040609
  Receipt Date: 20040525
  Transmission Date: 20050107
  Serious: Yes (Life-Threatening)
  Sender: FDA-Public Use
  Company Number: THYM-10173

PATIENT
  Age: 34 Year
  Sex: Female
  Weight: 71 kg

DRUGS (7)
  1. THYMOGLOBULIN [Suspect]
     Indication: IMMUNOSUPPRESSION
     Dosage: 100 MG ONCE IV
     Route: 042
     Dates: start: 20040513, end: 20040513
  2. THYMOGLOBULIN [Suspect]
     Indication: RENAL TRANSPLANT
     Dosage: 100 MG ONCE IV
     Route: 042
     Dates: start: 20040513, end: 20040513
  3. DEXAMETHASONE [Concomitant]
  4. DIPHENHYDRAMINE [Concomitant]
  5. ACETAMINOPHEN [Concomitant]
  6. MYCOPHENOLATE [Concomitant]
  7. CLINDAMYCIN [Concomitant]

REACTIONS (5)
  - CYTOKINE RELEASE SYNDROME [None]
  - FLUSHING [None]
  - HYPOTENSION [None]
  - TACHYCARDIA [None]
  - TONGUE OEDEMA [None]
